FAERS Safety Report 5906796-1 (Version None)
Quarter: 2008Q3

REPORT INFORMATION
  Report Type: 
  Country: None (occurrence: None)
  Receive Date: 20080929
  Receipt Date: 20080916
  Transmission Date: 20090109
  Serious: Yes (Hospitalization)
  Sender: FDA-Public Use
  Company Number: 2008-183809-NL

PATIENT
  Age: 31 Year
  Sex: Female

DRUGS (4)
  1. DEXAMETHASONE [Suspect]
     Indication: CONDITION AGGRAVATED
     Dosage: 60 MG ONCE INTRAVENOUS (NOS)
     Route: 042
  2. DEXAMETHASONE [Suspect]
     Indication: MULTIPLE SCLEROSIS
     Dosage: 60 MG ONCE INTRAVENOUS (NOS)
     Route: 042
  3. DEXAMETHASONE [Suspect]
     Indication: CONDITION AGGRAVATED
     Dosage: 4 MG INTRAVENOUS (NOS), FREQUENCY: EVERY 6 HOURS
     Route: 042
  4. DEXAMETHASONE [Suspect]
     Indication: MULTIPLE SCLEROSIS
     Dosage: 4 MG INTRAVENOUS (NOS), FREQUENCY: EVERY 6 HOURS
     Route: 042

REACTIONS (7)
  - BLOOD LACTATE DEHYDROGENASE ABNORMAL [None]
  - BONE INFARCTION [None]
  - FAT EMBOLISM [None]
  - HAEMOGLOBIN DECREASED [None]
  - LEUKOCYTOSIS [None]
  - NODULE ON EXTREMITY [None]
  - PAIN [None]
